FAERS Safety Report 9153865 (Version 1)
Quarter: 2013Q1

REPORT INFORMATION
  Report Type: Spontaneous
  Country: DE (occurrence: None)
  Receive Date: 20130205
  Receipt Date: 20130205
  Transmission Date: 20140127
  Serious: Yes (Other)
  Sender: FDA-Public Use
  Company Number: AUR-APL-2013-00960

PATIENT
  Age: 83 Year
  Sex: Female
  Weight: 60 kg

DRUGS (1)
  1. RAMIPRIL (RAMIPRIL) [Suspect]
     Indication: HYPERTENSION
     Route: 048
     Dates: start: 20120813, end: 20120903

REACTIONS (1)
  - Lip swelling [None]
